FAERS Safety Report 17084842 (Version 2)
Quarter: 2019Q4

REPORT INFORMATION
  Report Type: Spontaneous
  Country: IT (occurrence: IT)
  Receive Date: 20191127
  Receipt Date: 20191218
  Transmission Date: 20200122
  Serious: Yes (Death, Hospitalization)
  Sender: FDA-Public Use
  Company Number: IT-INCYTE CORPORATION-2019IN011690

PATIENT

DRUGS (2)
  1. JAKAVI [Suspect]
     Active Substance: RUXOLITINIB
     Dosage: 5 MG, BID
     Route: 065
  2. JAKAVI [Suspect]
     Active Substance: RUXOLITINIB
     Indication: CHRONIC GRAFT VERSUS HOST DISEASE
     Dosage: 5 MG, BID
     Route: 065
     Dates: start: 20161017, end: 20170123

REACTIONS (7)
  - Respiratory disorder [Not Recovered/Not Resolved]
  - Therapy partial responder [Unknown]
  - Respiratory distress [Unknown]
  - Sepsis [Unknown]
  - Death [Fatal]
  - Product use in unapproved indication [Unknown]
  - General physical health deterioration [Unknown]

NARRATIVE: CASE EVENT DATE: 20170201
